FAERS Safety Report 15927606 (Version 1)
Quarter: 2019Q1

REPORT INFORMATION
  Report Type: Spontaneous
  Country: US (occurrence: US)
  Receive Date: 20190206
  Receipt Date: 20190206
  Transmission Date: 20190417
  Serious: No
  Sender: FDA-Public Use
  Company Number: US-BAYER-2019-026504

PATIENT
  Sex: Female

DRUGS (5)
  1. TURMERIC [CURCUMA LONGA ROOT] [Concomitant]
  2. FIBER [Concomitant]
     Active Substance: PSYLLIUM HUSK
  3. MIRALAX [Suspect]
     Active Substance: POLYETHYLENE GLYCOL 3350
     Indication: GASTROINTESTINAL DISORDER
     Dosage: UNK UNK, QD
     Route: 048
     Dates: start: 2018
  4. PROBIOTIC [BIFIDOBACTERIUM LACTIS] [Concomitant]
  5. VITAMIN D [Concomitant]
     Active Substance: CHOLECALCIFEROL

REACTIONS (1)
  - Underdose [Unknown]

NARRATIVE: CASE EVENT DATE: 2018
